FAERS Safety Report 18388607 (Version 3)
Quarter: 2020Q4

REPORT INFORMATION
  Report Type: Spontaneous
  Country: US (occurrence: US)
  Receive Date: 20201015
  Receipt Date: 20201117
  Transmission Date: 20210114
  Serious: Yes (Hospitalization, Other)
  Sender: FDA-Public Use
  Company Number: US-SAOL THERAPEUTICS-2020SAO00442

PATIENT
  Age: 57 Year
  Sex: Male
  Weight: 64.85 kg

DRUGS (16)
  1. LIORESAL [Suspect]
     Active Substance: BACLOFEN
     Indication: QUADRIPARESIS
  2. TRULANCE [Concomitant]
     Active Substance: PLECANATIDE
  3. LIORESAL [Suspect]
     Active Substance: BACLOFEN
     Indication: CRANIOCEREBRAL INJURY
  4. LEVOTHYROXINE. [Concomitant]
     Active Substance: LEVOTHYROXINE
  5. KEPPRA [Concomitant]
     Active Substance: LEVETIRACETAM
  6. LACTULOSE. [Concomitant]
     Active Substance: LACTULOSE
  7. ZITHROMAX [Concomitant]
     Active Substance: AZITHROMYCIN DIHYDRATE
  8. LIORESAL [Suspect]
     Active Substance: BACLOFEN
     Indication: MUSCLE SPASTICITY
  9. DDAVP [Concomitant]
     Active Substance: DESMOPRESSIN ACETATE
  10. SERTRALINE [Concomitant]
     Active Substance: SERTRALINE HYDROCHLORIDE
  11. MYRBETRIQ [Concomitant]
     Active Substance: MIRABEGRON
  12. LIORESAL [Suspect]
     Active Substance: BACLOFEN
     Indication: MUSCLE SPASTICITY
     Dosage: 899.4 ?G, \DAY
     Route: 037
  13. FLONASE [Concomitant]
     Active Substance: FLUTICASONE PROPIONATE
  14. FLOMAX [Concomitant]
     Active Substance: TAMSULOSIN HYDROCHLORIDE
  15. OXYTROL [Concomitant]
     Active Substance: OXYBUTYNIN
  16. MIRTAZAPINE. [Concomitant]
     Active Substance: MIRTAZAPINE

REACTIONS (3)
  - Muscle spasticity [Recovered/Resolved]
  - Urinary tract infection [Recovered/Resolved]
  - Device failure [Recovered/Resolved]

NARRATIVE: CASE EVENT DATE: 202009
